FAERS Safety Report 4597260-3 (Version None)
Quarter: 2005Q1

REPORT INFORMATION
  Report Type: 
  Country: None (occurrence: None)
  Receive Date: 20050301
  Receipt Date: 20050222
  Transmission Date: 20050727
  Serious: Yes (Death, Hospitalization)
  Sender: FDA-Public Use
  Company Number: 2005GB00371

PATIENT
  Age: 77 Year
  Sex: Male

DRUGS (5)
  1. LOSEC [Suspect]
     Indication: OESOPHAGITIS
     Dosage: 20 MG PO
     Route: 048
     Dates: start: 20041115, end: 20041123
  2. DOMPERIDONE [Concomitant]
  3. LOSARTAN POTASSIUM [Concomitant]
  4. ATENOLOL [Concomitant]
  5. SIMVASTATIN [Concomitant]

REACTIONS (4)
  - BONE MARROW DEPRESSION [None]
  - DRUG ERUPTION [None]
  - NEUTROPENIA [None]
  - RENAL FAILURE ACUTE [None]
